FAERS Safety Report 6176158-3 (Version None)
Quarter: 2009Q2

REPORT INFORMATION
  Report Type: 
  Country: None (occurrence: None)
  Receive Date: 20090501
  Receipt Date: 20090428
  Transmission Date: 20091009
  Serious: Yes (Hospitalization)
  Sender: FDA-Public Use
  Company Number: CR-ASTRAZENECA-2009UW06785

PATIENT
  Age: 37 Year
  Sex: Female

DRUGS (6)
  1. SEROQUEL XR [Suspect]
     Indication: SCHIZOPHRENIA
     Route: 048
     Dates: start: 20081016
  2. SEROQUEL XR [Suspect]
     Route: 048
     Dates: start: 20081017
  3. SEROQUEL XR [Suspect]
     Route: 048
     Dates: start: 20081018, end: 20090301
  4. SEROQUEL XR [Suspect]
     Route: 048
     Dates: start: 20090302, end: 20090308
  5. BIPERIDEN HYDROCHLORIDE TAB [Concomitant]
     Indication: SCHIZOPHRENIA
     Route: 048
     Dates: start: 20060101, end: 20081016
  6. CLONAZEPAM [Concomitant]
     Indication: SCHIZOPHRENIA
     Route: 048
     Dates: start: 20081121, end: 20090308

REACTIONS (1)
  - SCHIZOPHRENIA [None]
